FAERS Safety Report 13750947 (Version 1)
Quarter: 2017Q3

REPORT INFORMATION
  Report Type: Spontaneous
  Country: US (occurrence: US)
  Receive Date: 20170713
  Receipt Date: 20170713
  Transmission Date: 20171127
  Serious: Yes (Other)
  Sender: FDA-Public Use
  Company Number: PHHY2017US103153

PATIENT
  Age: 27 Year
  Sex: Female

DRUGS (1)
  1. PAZOPANIB [Suspect]
     Active Substance: PAZOPANIB
     Indication: DESMOPLASTIC SMALL ROUND CELL TUMOUR
     Dosage: UNK
     Route: 065

REACTIONS (7)
  - Fatigue [Unknown]
  - Palpitations [Recovering/Resolving]
  - Thyroiditis acute [Recovering/Resolving]
  - Tremor [Recovering/Resolving]
  - Hyperthyroidism [Recovering/Resolving]
  - Neck pain [Recovering/Resolving]
  - Insomnia [Recovering/Resolving]
